FAERS Safety Report 18341512 (Version 2)
Quarter: 2020Q4

REPORT INFORMATION
  Report Type: Spontaneous
  Country: NL (occurrence: NL)
  Receive Date: 20201004
  Receipt Date: 20201030
  Transmission Date: 20210113
  Serious: Yes (Hospitalization)
  Sender: FDA-Public Use
  Company Number: NL-TEVA-2020-NL-1834380

PATIENT
  Age: 66 Year
  Sex: Male

DRUGS (10)
  1. METOCLOPRAMIDE TABLET 10MG / BRAND NAME NOT SPECIFIED [Suspect]
     Active Substance: METOCLOPRAMIDE
     Indication: NAUSEA
     Dosage: 3DD2, UNIT DOSE  : 60 MILLIGRAM
     Dates: start: 20120404, end: 20120410
  2. CAPECITABINE TABLET FO 150MG / XELODA TABLET FILMOMHULD 150MG [Concomitant]
     Dosage: 2DD2, THERAPY START DATE AND END DATE : ASKU, UNIT DOSE  : 600 MG
  3. ONDANSETRON SMELTTABLET 8MG / BRAND NAME NOT SPECIFIED [Concomitant]
     Dosage: DOSAGE UNKNOWN, THERAPY START DATE AND END DATE : ASKU, UNIT DOSE : 1 DOSAGE FORMS
  4. NADROPARINE INJVLST 19000IE/ML / FRAXIPARINE FORTE INJV 15200IE/0,8ML( [Concomitant]
     Dosage: .8 ML DAILY; 1DD 0.8ML, THERAPY START DATE AND END DATE : ASKU, UNIT DOSE  : 0.8ML
  5. ACENOCOUMAROL TABLET 1MG / BRAND NAME NOT SPECIFIED [Concomitant]
     Active Substance: ACENOCOUMAROL
     Dosage: ACCORDING TO PRESCRIPTION THROMBOSIS SERVICE, THERAPY START DATE AND END DATE : ASKU, UNIT DOSE : 1
  6. METOPROLOL TABLET MGA  25MG (SUCCINAAT) / BRAND NAME NOT SPECIFIED [Concomitant]
     Dosage: 25 MILLIGRAM DAILY; 1DD25MG, UNIT DOSE : 25 MG, THERAPY START DATE AND END DATE : ASKU
  7. MAGNESIUMHYDROXIDE KAUWTABLET 724MG / BRAND NAME NOT SPECIFIED [Concomitant]
     Dosage: 2DD724MG, THERAPY START DATE AND END DATE : ASKU, UNIT DOSE  : 1448 MG
  8. CAPECITABINE TABLET FO 500MG / XELODA TABLET FILMOMHULD 500MG [Concomitant]
     Dosage: 2DD4, THERAPY START DATE AND END DATE : ASKU, UNIT DOSE : 4 GRAM
  9. SIMVASTATINE TABLET 20MG - NON-CURRENT DRUG / BRAND NAME NOT SPECIFIED [Concomitant]
     Dosage: 20 MILLIGRAM DAILY; FOR THE NIGHT, THERAPY START DATE AND END DATE : ASKU, UNIT DOSE  : 20 MG
  10. PANTOPRAZOL TABLET MSR 40MG / BRAND NAME NOT SPECIFIED [Concomitant]
     Active Substance: PANTOPRAZOLE
     Dosage: 2DD40MG, UNIT DOSE  : 80 MG, THERAPY START DATE AND END DATE : ASKU

REACTIONS (5)
  - Swollen tongue [Recovered/Resolved]
  - Protrusion tongue [Recovered/Resolved]
  - Trismus [Recovered/Resolved]
  - Dyspnoea [Recovered/Resolved]
  - Extrapyramidal disorder [Recovered/Resolved]

NARRATIVE: CASE EVENT DATE: 20120409
